FAERS Safety Report 6987758-2 (Version None)
Quarter: 2010Q3

REPORT INFORMATION
  Report Type: 
  Country: None (occurrence: None)
  Receive Date: 20100916
  Receipt Date: 20100713
  Transmission Date: 20110219
  Serious: No
  Sender: FDA-Public Use
  Company Number: US-ABBOTT-10P-163-0658065-00

PATIENT
  Sex: Female

DRUGS (6)
  1. TRILIPIX [Suspect]
     Indication: BLOOD CHOLESTEROL INCREASED
     Dates: start: 20090101
  2. SIMVASTATIN [Concomitant]
     Indication: BLOOD CHOLESTEROL INCREASED
     Dates: start: 20080101
  3. PERCOCET [Concomitant]
     Indication: FIBROMYALGIA
     Dosage: UNKNOWN
  4. METFORMIN [Concomitant]
     Indication: DIABETES MELLITUS
     Dosage: UNKNOWN
  5. ZOLOFT [Concomitant]
     Indication: DEPRESSION
     Dosage: UNKNOWN
  6. XANAX [Concomitant]
     Indication: DEPRESSION
     Dosage: UNKNOWN

REACTIONS (1)
  - MUSCULAR WEAKNESS [None]
